FAERS Safety Report 4811614-9 (Version None)
Quarter: 2005Q4

REPORT INFORMATION
  Report Type: 
  Country: None (occurrence: None)
  Receive Date: 20051027
  Receipt Date: 20051020
  Transmission Date: 20060501
  Serious: Yes (Death)
  Sender: FDA-Public Use
  Company Number: IT-MERCK-0510ITA00030

PATIENT
  Age: 84 Year
  Sex: Male

DRUGS (1)
  1. VIOXX [Suspect]
     Indication: OSTEOARTHRITIS
     Route: 048
     Dates: start: 20030901, end: 20050501

REACTIONS (2)
  - SUDDEN DEATH [None]
  - TREATMENT NONCOMPLIANCE [None]
